FAERS Safety Report 10237691 (Version 1)
Quarter: 2014Q2

REPORT INFORMATION
  Report Type: Spontaneous
  Country: US (occurrence: None)
  Receive Date: 20140613
  Receipt Date: 20140613
  Transmission Date: 20141212
  Serious: No
  Sender: FDA-Public Use
  Company Number: None

PATIENT
  Age: 79 Year
  Sex: Male
  Weight: 113.85 kg

DRUGS (1)
  1. XTANDI 40MG [Suspect]
     Route: 048
     Dates: start: 20140101, end: 20140611

REACTIONS (2)
  - Dry throat [None]
  - Dizziness [None]
